FAERS Safety Report 5973848-X (Version None)
Quarter: 2008Q4

REPORT INFORMATION
  Report Type: 
  Country: None (occurrence: None)
  Receive Date: 20081201
  Receipt Date: 20081119
  Transmission Date: 20090506
  Serious: Yes (Death, Hospitalization)
  Sender: FDA-Public Use
  Company Number: DK-ROCHE-598164

PATIENT
  Sex: Female
  Weight: 70 kg

DRUGS (4)
  1. XELODA [Suspect]
     Indication: CHEMOTHERAPY
     Dosage: DOSAGE FORM: FILM COATED TABLET
     Route: 048
     Dates: start: 20080913, end: 20080918
  2. ELOXATIN [Concomitant]
     Indication: CHEMOTHERAPY
     Dosage: STRENGTH: 5 MG/ML
     Route: 042
     Dates: start: 20080912, end: 20080912
  3. LAMICTAL [Concomitant]
     Dosage: FREQUENCY: QD
     Route: 048
     Dates: start: 20080715, end: 20081107
  4. VIAGRA [Concomitant]
     Dosage: DOSGE FORM: FILM COATED TABLET
     Route: 048
     Dates: start: 20081002, end: 20081107

REACTIONS (6)
  - DISSEMINATED INTRAVASCULAR COAGULATION [None]
  - INTESTINAL ISCHAEMIA [None]
  - MULTI-ORGAN FAILURE [None]
  - PERITONITIS [None]
  - RESPIRATORY FAILURE [None]
  - SEPSIS [None]
